FAERS Safety Report 21216230 (Version 1)
Quarter: 2022Q3

REPORT INFORMATION
  Report Type: Spontaneous
  Country: JP (occurrence: JP)
  Receive Date: 20220816
  Receipt Date: 20220816
  Transmission Date: 20221027
  Serious: Yes (Death, Other)
  Sender: FDA-Public Use
  Company Number: JP-CHEPLA-2022006956

PATIENT
  Age: 47 Year
  Sex: Male

DRUGS (9)
  1. GANCICLOVIR [Suspect]
     Active Substance: GANCICLOVIR
     Indication: Cytomegalovirus infection
     Dosage: WITHDRAWAL OF GCV THERAPY
  2. GANCICLOVIR [Suspect]
     Active Substance: GANCICLOVIR
     Indication: Cytomegalovirus infection
     Dosage: GCV THERAPY WAS RESTARTED
  3. PREDNISONE [Suspect]
     Active Substance: PREDNISONE
     Indication: Pemphigoid
     Dosage: DAILY DOSE: 60 MILLIGRAM
     Route: 048
  4. PREDNISONE [Suspect]
     Active Substance: PREDNISONE
     Indication: Pemphigoid
     Dosage: TWO COURSES OF INTRAVENOUS 500 MG PULSE PREDNISONE FOR 3 DAYS
     Route: 042
  5. PREDNISONE [Suspect]
     Active Substance: PREDNISONE
     Indication: Pemphigoid
  6. PREDNISONE [Suspect]
     Active Substance: PREDNISONE
     Indication: Pemphigoid
     Dosage: DAILY DOSE: 60 MILLIGRAM
  7. PREDNISONE [Suspect]
     Active Substance: PREDNISONE
     Indication: Pemphigoid
     Dosage: TAPERED DOSE OF PREDNISONE
  8. CYCLOPHOSPHAMIDE [Suspect]
     Active Substance: CYCLOPHOSPHAMIDE
     Indication: Pemphigoid
     Dosage: DAILY DOSE: 100 MILLIGRAM
  9. CYCLOPHOSPHAMIDE [Suspect]
     Active Substance: CYCLOPHOSPHAMIDE
     Indication: Pemphigoid
     Dosage: DAILY DOSE: 50 MILLIGRAM

REACTIONS (2)
  - Epstein-Barr virus associated lymphoma [Fatal]
  - Pneumonia cytomegaloviral [Unknown]
